FAERS Safety Report 14216165 (Version 1)
Quarter: 2017Q4

REPORT INFORMATION
  Report Type: Report from Study
  Country: CN (occurrence: CN)
  Receive Date: 20171122
  Receipt Date: 20171122
  Transmission Date: 20180321
  Serious: Yes (Other)
  Sender: FDA-Public Use
  Company Number: CN-ASTELLAS-2017US047580

PATIENT
  Age: 51 Year
  Sex: Male

DRUGS (4)
  1. BASILIXIMAB [Concomitant]
     Active Substance: BASILIXIMAB
     Indication: LIVER TRANSPLANT
     Dosage: UNK, UNKNOWN FREQ.
     Route: 065
  2. MYCOPHENOLATE MOFETIL. [Concomitant]
     Active Substance: MYCOPHENOLATE MOFETIL
     Indication: LIVER TRANSPLANT
  3. METHYLPREDNISOLONE. [Concomitant]
     Active Substance: METHYLPREDNISOLONE
     Indication: LIVER TRANSPLANT
     Dosage: UNK UNK, UNKNOWN FREQ.
     Route: 065
  4. TACROLIMUS. [Suspect]
     Active Substance: TACROLIMUS
     Indication: LIVER TRANSPLANT
     Dosage: 2.0-3.5 MG, TWICE DAILY
     Route: 065

REACTIONS (2)
  - Psoriasis [Recovering/Resolving]
  - Nephropathy toxic [Unknown]
